FAERS Safety Report 4352793-X (Version None)
Quarter: 2004Q2

REPORT INFORMATION
  Report Type: 
  Country: None (occurrence: None)
  Receive Date: 20040429
  Receipt Date: 20040421
  Transmission Date: 20050107
  Serious: Yes (Death)
  Sender: FDA-Public Use
  Company Number: 2004UW08031

PATIENT
  Sex: Male

DRUGS (3)
  1. SEROQUEL [Suspect]
  2. ALCOHOL [Concomitant]
  3. CELEXA [Concomitant]

REACTIONS (1)
  - BLOOD ALCOHOL INCREASED [None]
